FAERS Safety Report 6374058-7 (Version None)
Quarter: 2009Q3

REPORT INFORMATION
  Report Type: 
  Country: None (occurrence: None)
  Receive Date: 20090924
  Receipt Date: 20090715
  Transmission Date: 20100115
  Serious: No
  Sender: FDA-Public Use
  Company Number: US-ASTRAZENECA-2009UW19792

PATIENT
  Age: 32 Year
  Sex: Male
  Weight: 81.6 kg

DRUGS (2)
  1. SEROQUEL [Suspect]
     Route: 048
     Dates: start: 20090501
  2. ZYRTEC-D 12 HOUR [Concomitant]

REACTIONS (2)
  - LETHARGY [None]
  - MENTAL DISORDER [None]
